FAERS Safety Report 5633602-5 (Version None)
Quarter: 2008Q1

REPORT INFORMATION
  Report Type: 
  Country: None (occurrence: None)
  Receive Date: 20080221
  Receipt Date: 20080212
  Transmission Date: 20080703
  Serious: Yes (Hospitalization)
  Sender: FDA-Public Use
  Company Number: CA-PFIZER INC-2008013940

PATIENT
  Sex: Female

DRUGS (2)
  1. NORVASC [Suspect]
     Indication: HYPERTENSION
     Route: 048
  2. ERLOTINIB [Interacting]
     Indication: NON-SMALL CELL LUNG CANCER
     Dosage: TEXT:1 DOSE FORM
     Route: 048

REACTIONS (3)
  - DRUG INTERACTION [None]
  - RASH [None]
  - RESPIRATORY TRACT INFECTION [None]
